FAERS Safety Report 9955734 (Version 1)
Quarter: 2014Q1

REPORT INFORMATION
  Report Type: Spontaneous
  Country: FR (occurrence: FR)
  Receive Date: 20140304
  Receipt Date: 20140304
  Transmission Date: 20141002
  Serious: Yes (Other)
  Sender: FDA-Public Use
  Company Number: FR-ABBVIE-14P-056-1208641-00

PATIENT
  Age: 44 Year
  Sex: Female

DRUGS (4)
  1. DEPAKINE CHRONO [Suspect]
     Indication: IDIOPATHIC GENERALISED EPILEPSY
     Route: 048
     Dates: start: 1980
  2. TRINORDIOL [Suspect]
     Indication: ORAL CONTRACEPTION
     Dosage: EVERY THREE WEEKS
     Route: 048
     Dates: start: 1995, end: 2005
  3. ETHINYLESTRADIOL W/LEVONORGESTREL [Suspect]
     Indication: ORAL CONTRACEPTION
     Dosage: EVERY THREE WEEKS
     Route: 048
     Dates: start: 2005, end: 2012
  4. CONTRACEPTIVES [Suspect]
     Indication: ORAL CONTRACEPTION
     Dosage: EVERY THREE WEEKS
     Route: 048
     Dates: start: 2012, end: 2013

REACTIONS (2)
  - Nodular regenerative hyperplasia [Not Recovered/Not Resolved]
  - Gamma-glutamyltransferase increased [Not Recovered/Not Resolved]
